FAERS Safety Report 6260920-2 (Version None)
Quarter: 2009Q3

REPORT INFORMATION
  Report Type: 
  Country: None (occurrence: None)
  Receive Date: 20090709
  Receipt Date: 20090701
  Transmission Date: 20100115
  Serious: Yes (Other)
  Sender: FDA-Public Use
  Company Number: FR-B.I. PHARMACEUTICALS,INC./RIDGEFIELD-2009-DE-04705BY

PATIENT
  Sex: Male
  Weight: 81 kg

DRUGS (1)
  1. PRITOR [Suspect]
     Dosage: 80 MG
     Route: 048
     Dates: start: 20090409, end: 20090526

REACTIONS (2)
  - HEPATITIS [None]
  - JAUNDICE HEPATOCELLULAR [None]
